FAERS Safety Report 5922053-1 (Version None)
Quarter: 2008Q4

REPORT INFORMATION
  Report Type: 
  Country: None (occurrence: None)
  Receive Date: 20081017
  Receipt Date: 20081010
  Transmission Date: 20090506
  Serious: Yes (Other)
  Sender: FDA-Public Use
  Company Number: B0532433A

PATIENT
  Age: 41 Year
  Sex: Female

DRUGS (3)
  1. ZANTAC [Suspect]
     Dosage: 50MG PER DAY
     Route: 042
     Dates: start: 20080731, end: 20080731
  2. CEFAZOLIN SODIUM [Suspect]
     Indication: DRUG USE FOR UNKNOWN INDICATION
     Route: 042
     Dates: start: 20080731, end: 20080731
  3. ISOTONIC SODIUM CHLORIDE SOLUTION [Concomitant]

REACTIONS (6)
  - ANAPHYLACTIC REACTION [None]
  - BLOOD PRESSURE DECREASED [None]
  - ERYTHEMA [None]
  - RASH [None]
  - TACHYCARDIA [None]
  - URTICARIA [None]
